FAERS Safety Report 9716896 (Version 1)
Quarter: 2013Q4

REPORT INFORMATION
  Report Type: Spontaneous
  Country: US (occurrence: US)
  Receive Date: 20131127
  Receipt Date: 20131127
  Transmission Date: 20140711
  Serious: No
  Sender: FDA-Public Use
  Company Number: US-GILEAD-2009-0019880

PATIENT
  Sex: Male

DRUGS (4)
  1. LETAIRIS [Suspect]
     Indication: PULMONARY ARTERIAL HYPERTENSION
     Route: 048
     Dates: start: 20081213, end: 20090115
  2. REVATIO [Concomitant]
  3. ADVAIR [Concomitant]
  4. ASPIRIN [Concomitant]

REACTIONS (5)
  - Epistaxis [Unknown]
  - Headache [Unknown]
  - Nasal congestion [Unknown]
  - Oedema peripheral [Unknown]
  - Constipation [Unknown]
